FAERS Safety Report 7415070-6 (Version None)
Quarter: 2011Q2

REPORT INFORMATION
  Report Type: 
  Country: None (occurrence: None)
  Receive Date: 20110414
  Receipt Date: 20110405
  Transmission Date: 20111010
  Serious: Yes (Hospitalization)
  Sender: FDA-Public Use
  Company Number: US-ROCHE-769851

PATIENT
  Sex: Female
  Weight: 69.9 kg

DRUGS (5)
  1. SOTALOL HCL [Concomitant]
  2. FLAXSEED [Concomitant]
     Dosage: DRUG REPORTED AS FLAX
  3. BONIVA [Suspect]
     Indication: OSTEOPENIA
     Route: 048
     Dates: start: 20060101
  4. COUMADIN [Concomitant]
  5. CALCIUM [Concomitant]

REACTIONS (1)
  - ATRIAL FIBRILLATION [None]
